FAERS Safety Report 22084166 (Version 1)
Quarter: 2023Q1

REPORT INFORMATION
  Report Type: Spontaneous
  Country: US (occurrence: None)
  Receive Date: 20230309
  Receipt Date: 20230309
  Transmission Date: 20230417
  Serious: Yes (unspecified)
  Sender: FDA-Public Use
  Company Number: None

PATIENT
  Age: 69 Year
  Weight: 77.5 kg

DRUGS (1)
  1. DENOSUMAB [Suspect]
     Active Substance: DENOSUMAB

REACTIONS (3)
  - Blood albumin decreased [None]
  - Blood phosphorus decreased [None]
  - Hypocalcaemia [None]

NARRATIVE: CASE EVENT DATE: 20221215
